FAERS Safety Report 6140609-0 (Version None)
Quarter: 2009Q2

REPORT INFORMATION
  Report Type: 
  Country: None (occurrence: None)
  Receive Date: 20090402
  Receipt Date: 20090325
  Transmission Date: 20091009
  Serious: Yes (Hospitalization)
  Sender: FDA-Public Use
  Company Number: DE-JNJFOC-20090305954

PATIENT
  Age: 76 Year
  Sex: Male

DRUGS (14)
  1. RISPERDAL [Suspect]
     Indication: DEMENTIA ALZHEIMER'S TYPE
     Route: 048
  2. ARICEPT [Suspect]
     Indication: DEMENTIA ALZHEIMER'S TYPE
     Route: 048
  3. AXURA [Suspect]
     Route: 048
  4. AXURA [Suspect]
     Route: 048
  5. AXURA [Suspect]
     Route: 048
  6. AXURA [Suspect]
     Indication: DEMENTIA ALZHEIMER'S TYPE
     Route: 048
  7. ALLOPURINOL [Concomitant]
     Indication: HYPERURICAEMIA
     Route: 048
  8. DIGITOXIN [Concomitant]
     Indication: ATRIAL FIBRILLATION
     Route: 048
  9. FALITHROM [Concomitant]
     Indication: MITRAL VALVE DISEASE
     Route: 048
  10. OLANZAPINE [Concomitant]
     Indication: DEMENTIA ALZHEIMER'S TYPE
     Dosage: 0-0-1
     Route: 048
  11. SIMVASTATIN [Concomitant]
     Indication: HYPERCHOLESTEROLAEMIA
     Route: 048
  12. TORASEMIDE [Concomitant]
     Indication: HYPERTENSION
     Route: 048
  13. XIPAMIDE [Concomitant]
     Indication: HYPERTENSION
     Route: 048
  14. ATACAND [Concomitant]
     Indication: HYPERTENSION
     Route: 048

REACTIONS (5)
  - CLONIC CONVULSION [None]
  - CONFUSIONAL STATE [None]
  - DEHYDRATION [None]
  - FATIGUE [None]
  - GENERAL PHYSICAL HEALTH DETERIORATION [None]
